FAERS Safety Report 4711412-0 (Version None)
Quarter: 2005Q3

REPORT INFORMATION
  Report Type: 
  Country: None (occurrence: None)
  Receive Date: 20050711
  Receipt Date: 20050629
  Transmission Date: 20060218
  Serious: Yes (Other)
  Sender: FDA-Public Use
  Company Number: 2005094234

PATIENT
  Sex: Female

DRUGS (1)
  1. LIPITOR [Suspect]
     Indication: ILL-DEFINED DISORDER
     Dosage: ORAL
     Route: 048

REACTIONS (4)
  - CERVICECTOMY [None]
  - LYMPHADENECTOMY [None]
  - OOPHORECTOMY BILATERAL [None]
  - URINARY INCONTINENCE [None]
